FAERS Safety Report 17639078 (Version 1)
Quarter: 2020Q2

REPORT INFORMATION
  Report Type: Spontaneous
  Country: JP (occurrence: JP)
  Receive Date: 20200407
  Receipt Date: 20200407
  Transmission Date: 20200713
  Serious: Yes (Hospitalization)
  Sender: FDA-Public Use
  Company Number: JP-ADAMAS PHARMA, LLC-2020ADA00826

PATIENT
  Age: 80 Year
  Sex: Female
  Weight: 52.2 kg

DRUGS (4)
  1. AMANTADINE. [Suspect]
     Active Substance: AMANTADINE HYDROCHLORIDE
     Indication: CEREBRAL INFARCTION
     Dosage: 150 MG, 1X/DAY
     Route: 065
  2. DONEPEZIL. [Suspect]
     Active Substance: DONEPEZIL
     Indication: DEMENTIA ALZHEIMER^S TYPE
     Dosage: 3 MG, 1X/DAY
     Route: 065
  3. APIXABAN [Concomitant]
     Active Substance: APIXABAN
     Dosage: 5 MG, 1X/DAY
     Route: 048
  4. DONEPEZIL. [Suspect]
     Active Substance: DONEPEZIL
     Dosage: 5 MG, 1X/DAY
     Route: 065

REACTIONS (7)
  - Pyrexia [Recovered/Resolved]
  - Tremor [Recovered/Resolved]
  - Tachycardia [Recovered/Resolved]
  - Hypertonia [Recovered/Resolved]
  - Hyperkinesia [Recovered/Resolved]
  - Drug interaction [Recovered/Resolved]
  - Accidental overdose [Recovered/Resolved]
